FAERS Safety Report 5325928-X (Version None)
Quarter: 2007Q2

REPORT INFORMATION
  Report Type: 
  Country: None (occurrence: None)
  Receive Date: 20070516
  Receipt Date: 20070508
  Transmission Date: 20071010
  Serious: Yes (Death, Other)
  Sender: FDA-Public Use
  Company Number: PHEH2005US07380

PATIENT
  Age: 73 Year
  Sex: Male
  Weight: 108.39 kg

DRUGS (13)
  1. ZOMETA [Suspect]
     Indication: MULTIPLE MYELOMA
     Dosage: 4 MG IV OVER 15 MIN. MONTHLY
     Dates: start: 20011217, end: 20050401
  2. CLINDAMYCIN [Concomitant]
  3. VICODIN [Concomitant]
     Indication: BONE PAIN
     Dosage: UNK, QD
     Dates: start: 20000901
  4. VINCRISTINE [Concomitant]
     Dates: start: 20000901, end: 20010901
  5. MELPHALAN [Concomitant]
     Dates: start: 20000901, end: 20010901
  6. MELPHALAN [Concomitant]
     Dates: start: 20040416, end: 20040903
  7. CYTOXAN [Concomitant]
     Dates: start: 20000901, end: 20010901
  8. CYTOXAN [Concomitant]
     Dates: start: 20040416, end: 20040903
  9. PREDNISONE TAB [Concomitant]
     Dosage: 80 MG
     Dates: start: 20040416, end: 20040903
  10. PREDNISONE TAB [Concomitant]
     Dosage: 80 MG QD X 4 DAYS FOR 8 CYLCES
     Dates: start: 20010108, end: 20010917
  11. THALIDOMIDE [Concomitant]
     Indication: CHEMOTHERAPY
     Dosage: 400 MG, QD
     Route: 048
     Dates: start: 20011022, end: 20011119
  12. AREDIA [Suspect]
     Indication: MULTIPLE MYELOMA
     Dosage: 90 MG IV MONTHLY (TWO DOSES ONLY)
     Route: 042
     Dates: start: 20011022, end: 20011119
  13. PROCRIT [Concomitant]
     Indication: ANAEMIA
     Dates: start: 20010430

REACTIONS (12)
  - BONE DISORDER [None]
  - DEATH [None]
  - ERYTHEMA [None]
  - GINGIVAL INFECTION [None]
  - IMPAIRED HEALING [None]
  - INFECTION [None]
  - OEDEMA MOUTH [None]
  - OSTEONECROSIS [None]
  - PAIN IN JAW [None]
  - TOOTH EXTRACTION [None]
  - WOUND DEBRIDEMENT [None]
  - WOUND DRAINAGE [None]
